FAERS Safety Report 12599643 (Version 1)
Quarter: 2016Q3

REPORT INFORMATION
  Report Type: Spontaneous
  Country: GB (occurrence: GB)
  Receive Date: 20160727
  Receipt Date: 20160727
  Transmission Date: 20161109
  Serious: Yes (Disabling, Other)
  Sender: FDA-Public Use
  Company Number: PHHY2016GB099387

PATIENT
  Age: 37 Year
  Sex: Male
  Weight: 82.55 kg

DRUGS (1)
  1. CARBOPLATIN. [Suspect]
     Active Substance: CARBOPLATIN
     Indication: TESTIS CANCER
     Dosage: SINGLE HIGH DOSE - STANDARD TESTICULAR CANCER TREATMENT FOLLOWING REMOVAL OF ONE TESTICLE
     Route: 051
     Dates: start: 20140827, end: 20140828

REACTIONS (8)
  - Dizziness [Not Recovered/Not Resolved]
  - Vitamin D deficiency [Unknown]
  - Fatigue [Not Recovered/Not Resolved]
  - Arthralgia [Not Recovered/Not Resolved]
  - Malaise [Not Recovered/Not Resolved]
  - Cognitive disorder [Not Recovered/Not Resolved]
  - Myalgia [Not Recovered/Not Resolved]
  - Inflammation [Unknown]

NARRATIVE: CASE EVENT DATE: 20140827
